FAERS Safety Report 8613069-5 (Version None)
Quarter: 2012Q3

REPORT INFORMATION
  Report Type: 
  Country: None (occurrence: None)
  Receive Date: 20120822
  Receipt Date: 20120726
  Transmission Date: 20120928
  Serious: Yes (Other)
  Sender: FDA-Public Use
  Company Number: JP-009507513-2012SP018375

PATIENT

DRUGS (24)
  1. PEGINTERFERON ALFA-2B [Suspect]
     Indication: HEPATITIS C
     Dosage: 80 ?G/KG, QW
     Route: 058
     Dates: start: 20120228
  2. REBETOL [Suspect]
     Dosage: 400 MG, QD
     Route: 048
     Dates: start: 20120323
  3. TELAVIC [Suspect]
     Route: 048
     Dates: start: 20120224, end: 20120226
  4. WARFARIN SODIUM [Concomitant]
     Indication: THROMBOSIS PROPHYLAXIS
     Route: 048
  5. URSO 250 [Concomitant]
     Route: 048
  6. DIGOXIN [Concomitant]
     Indication: CARDIOVASCULAR EVENT PROPHYLAXIS
     Route: 048
  7. TELAVIC [Suspect]
     Route: 048
     Dates: start: 20120327, end: 20120403
  8. TELAVIC [Suspect]
     Route: 048
     Dates: start: 20120404
  9. REBETOL [Suspect]
     Dosage: 400 MG, QD
     Route: 048
     Dates: start: 20120305, end: 20120317
  10. URSO 250 [Concomitant]
     Indication: HEPATITIS C
     Dosage: UPDATE: 14 MAY 2012
     Route: 048
  11. NIZATIDINE [Concomitant]
     Indication: PRODUCT USED FOR UNKNOWN INDICATION
     Dosage: UPDATE: 14 MAY 2012
     Route: 048
  12. REBETOL [Suspect]
     Route: 048
     Dates: start: 20120224, end: 20120227
  13. INVESTIGATIONAL DRUG (UNSPECIFIED) [Suspect]
     Dosage: 1500 MG, QD
     Route: 048
     Dates: start: 20120305, end: 20120317
  14. TELAVIC [Suspect]
     Route: 048
     Dates: start: 20120305, end: 20120317
  15. EFONIDIPINE HYDROCHLORIDE ETHANOLATE [Concomitant]
     Indication: HYPERTENSION
     Route: 048
  16. REBETOL [Suspect]
     Indication: HEPATITIS C
     Dosage: 400 MG, QD
     Route: 048
     Dates: start: 20120228, end: 20120301
  17. INVESTIGATIONAL DRUG (UNSPECIFIED) [Suspect]
     Indication: HEPATITIS C
     Dosage: 2250 MG, QD
     Route: 048
     Dates: start: 20120228, end: 20120301
  18. INVESTIGATIONAL DRUG (UNSPECIFIED) [Suspect]
     Dosage: 1500 MG, QD
     Route: 048
     Dates: start: 20120327, end: 20120403
  19. PEG-INTRON [Suspect]
     Indication: HEPATITIS C
     Dosage: 1.3MCG/KG/WEEK
     Route: 058
     Dates: start: 20120228
  20. PEG-INTRON [Suspect]
     Dosage: 1.5MCG/KG/WEEK
     Route: 058
     Dates: start: 20120224, end: 20120224
  21. TELAVIC [Suspect]
     Indication: HEPATITIS C
     Route: 048
     Dates: start: 20120228, end: 20120301
  22. NIZATIDINE [Concomitant]
     Indication: PROPHYLAXIS
     Route: 048
  23. DIOVAN [Concomitant]
     Indication: HYPERTENSION
     Route: 048
  24. INVESTIGATIONAL DRUG (UNSPECIFIED) [Suspect]
     Dosage: 750 MG, QD
     Route: 048
     Dates: start: 20120404

REACTIONS (3)
  - VOMITING [None]
  - NAUSEA [None]
  - RENAL DISORDER [None]
